FAERS Safety Report 6985028-X (Version None)
Quarter: 2010Q3

REPORT INFORMATION
  Report Type: 
  Country: None (occurrence: None)
  Receive Date: 20100915
  Receipt Date: 20100903
  Transmission Date: 20110219
  Serious: Yes (Hospitalization)
  Sender: FDA-Public Use
  Company Number: PHHY2010JP52720

PATIENT
  Sex: Female

DRUGS (4)
  1. TEGRETOL [Suspect]
     Indication: EPILEPSY
     Dosage: 200 MG, DAILY
     Route: 048
     Dates: start: 20100624
  2. TEGRETOL [Suspect]
     Indication: COMPLEX PARTIAL SEIZURES
  3. CELECOXIB [Concomitant]
     Indication: ARTHRITIS
     Dosage: 200 MG, UNK
     Route: 048
     Dates: start: 20100506, end: 20100731
  4. GASTER D [Concomitant]

REACTIONS (11)
  - DRUG ERUPTION [None]
  - DYSPNOEA [None]
  - ERYTHEMA [None]
  - ERYTHEMA MULTIFORME [None]
  - HAEMOGLOBIN DECREASED [None]
  - LIP ULCERATION [None]
  - OEDEMA GENITAL [None]
  - OEDEMA MUCOSAL [None]
  - PYREXIA [None]
  - STEVENS-JOHNSON SYNDROME [None]
  - STOMATITIS [None]
